FAERS Safety Report 13285750 (Version 2)
Quarter: 2017Q2

REPORT INFORMATION
  Report Type: Report from Study
  Country: US (occurrence: MX)
  Receive Date: 20170301
  Receipt Date: 20170402
  Transmission Date: 20170830
  Serious: Yes (Death, Other)
  Sender: FDA-Public Use
  Company Number: US-SUNOVION-2017SUN000891

PATIENT
  Sex: Male

DRUGS (1)
  1. INDACATEROL AND GLYCOPYRROLATE [Suspect]
     Active Substance: GLYCOPYRROLATE\INDACATEROL MALEATE
     Indication: PRODUCT USED FOR UNKNOWN INDICATION
     Dosage: 1 DF (50 UG), QD
     Route: 065
     Dates: end: 20170219

REACTIONS (3)
  - Cardiac failure [Fatal]
  - Sleep apnoea syndrome [Unknown]
  - Hypertension [Fatal]
